FAERS Safety Report 4365472-X (Version None)
Quarter: 2004Q2

REPORT INFORMATION
  Report Type: 
  Country: None (occurrence: None)
  Receive Date: 20040526
  Receipt Date: 20040517
  Transmission Date: 20050107
  Serious: Yes (Other)
  Sender: FDA-Public Use
  Company Number: CA-JNJFOC-20040201950

PATIENT
  Age: 75 Year
  Sex: Female
  Weight: 72.58 kg

DRUGS (1)
  1. REMINYL [Suspect]
     Indication: DEMENTIA
     Route: 049
     Dates: start: 20040124, end: 20040130

REACTIONS (2)
  - RASH GENERALISED [None]
  - RASH PRURITIC [None]
